FAERS Safety Report 6105419-9 (Version None)
Quarter: 2009Q1

REPORT INFORMATION
  Report Type: 
  Country: None (occurrence: None)
  Receive Date: 20090306
  Receipt Date: 20090224
  Transmission Date: 20090719
  Serious: Yes (Hospitalization)
  Sender: FDA-Public Use
  Company Number: JP-NOVOPROD-284489

PATIENT
  Sex: Male

DRUGS (4)
  1. INNOLET N CHU [Suspect]
     Indication: TYPE 2 DIABETES MELLITUS
     Dosage: UNKNOWN
     Route: 058
  2. INNOLET R CHU [Suspect]
     Indication: TYPE 2 DIABETES MELLITUS
     Dosage: UNKNOWN
     Route: 058
  3. LEVEMIR [Concomitant]
     Route: 058
     Dates: start: 20090207, end: 20090218
  4. NOVORAPID CHU FLEXPEN [Concomitant]
     Route: 058
     Dates: start: 20090207, end: 20090218

REACTIONS (2)
  - HEPATIC FUNCTION ABNORMAL [None]
  - PANCREATITIS ACUTE [None]
